FAERS Safety Report 11858446 (Version 1)
Quarter: 2015Q4

REPORT INFORMATION
  Report Type: Spontaneous
  Country: IT (occurrence: IT)
  Receive Date: 20151222
  Receipt Date: 20151222
  Transmission Date: 20160305
  Serious: Yes (Hospitalization)
  Sender: FDA-Public Use
  Company Number: IT-BAYER-2015-487848

PATIENT
  Age: 42 Year
  Sex: Male
  Weight: 72 kg

DRUGS (1)
  1. BETAFERON [Suspect]
     Active Substance: INTERFERON BETA-1B
     Indication: MULTIPLE SCLEROSIS
     Dosage: 250 ?G, QOD
     Dates: start: 20041229

REACTIONS (1)
  - Subcutaneous abscess [Unknown]

NARRATIVE: CASE EVENT DATE: 20151110
